FAERS Safety Report 5371579-0 (Version None)
Quarter: 2007Q2

REPORT INFORMATION
  Report Type: 
  Country: None (occurrence: None)
  Receive Date: 20070627
  Receipt Date: 20070620
  Transmission Date: 20071010
  Serious: Yes (Other)
  Sender: FDA-Public Use
  Company Number: DEWYE887420JUN07

PATIENT
  Sex: Female

DRUGS (2)
  1. TREVILOR [Suspect]
     Indication: DEPRESSION
     Dosage: UNKNOWN
  2. CYCLOPHOSPHAMIDE [Interacting]
     Dosage: UNKNOWN

REACTIONS (4)
  - BREAST CANCER FEMALE [None]
  - CONDITION AGGRAVATED [None]
  - DEPRESSION [None]
  - DRUG INTERACTION [None]
